FAERS Safety Report 6198667-3 (Version None)
Quarter: 2009Q2

REPORT INFORMATION
  Report Type: 
  Country: None (occurrence: None)
  Receive Date: 20090521
  Receipt Date: 20090512
  Transmission Date: 20091009
  Serious: Yes (Other)
  Sender: FDA-Public Use
  Company Number: US-JNJCH-2009013461

PATIENT
  Sex: Male

DRUGS (1)
  1. MINOXIDIL [Suspect]
     Indication: ALOPECIA
     Dosage: TEXT:UNSPECIFIED
     Route: 061

REACTIONS (2)
  - BUNDLE BRANCH BLOCK [None]
  - CARDIAC DISORDER [None]
